FAERS Safety Report 17343274 (Version 1)
Quarter: 2020Q1

REPORT INFORMATION
  Report Type: Spontaneous
  Country: US (occurrence: US)
  Receive Date: 20200129
  Receipt Date: 20200129
  Transmission Date: 20200409
  Serious: No
  Sender: FDA-Public Use
  Company Number: US-ALLERGAN-1935096US

PATIENT
  Sex: Female

DRUGS (3)
  1. BOTOX [Suspect]
     Active Substance: ONABOTULINUMTOXINA
     Indication: SKIN WRINKLING
     Dosage: UNK
     Dates: start: 20190110, end: 20190110
  2. VOLBELLA [Concomitant]
     Active Substance: HYALURONIC ACID
  3. JUVEDERM [Concomitant]
     Active Substance: HYALURONIC ACID
     Dosage: UNK
     Dates: start: 20190110, end: 20190110

REACTIONS (4)
  - Speech disorder [Unknown]
  - Dysphonia [Unknown]
  - Amyotrophic lateral sclerosis [Unknown]
  - Muscular weakness [Unknown]
